FAERS Safety Report 16672878 (Version 6)
Quarter: 2020Q4

REPORT INFORMATION
  Report Type: Spontaneous
  Country: IT (occurrence: IT)
  Receive Date: 20190806
  Receipt Date: 20201014
  Transmission Date: 20210113
  Serious: Yes (Death, Other)
  Sender: FDA-Public Use
  Company Number: IT-MYLANLABS-MK-6010318

PATIENT
  Age: 45 Year
  Sex: Female

DRUGS (69)
  1. ITRACONAZOLE. [Suspect]
     Active Substance: ITRACONAZOLE
     Indication: ORAL CANDIDIASIS
     Dosage: 100 MILLIGRAM
     Dates: start: 20021009, end: 20021106
  2. ITRACONAZOLE. [Suspect]
     Active Substance: ITRACONAZOLE
     Dosage: UNK
     Route: 065
     Dates: start: 20021009
  3. OMEPRAZOLE. [Suspect]
     Active Substance: OMEPRAZOLE
     Indication: PRODUCT USED FOR UNKNOWN INDICATION
     Dosage: 20 MILLIGRAM, QD
     Route: 048
     Dates: start: 20020927, end: 20021103
  4. METOCLOPRAMIDE. [Suspect]
     Active Substance: METOCLOPRAMIDE
     Indication: PRODUCT USED FOR UNKNOWN INDICATION
     Dosage: UNK
     Route: 065
     Dates: start: 20020927
  5. CANRENOIC ACID [Suspect]
     Active Substance: CANRENOIC ACID
     Indication: RENAL IMPAIRMENT
     Dosage: UNK
     Route: 048
     Dates: start: 20021004, end: 20021015
  6. CEFACLOR. [Suspect]
     Active Substance: CEFACLOR
     Indication: CYSTITIS
     Dosage: UNK
     Route: 065
     Dates: start: 20020927
  7. MAGNESIUM HYDROXIDE. [Concomitant]
     Active Substance: MAGNESIUM HYDROXIDE
     Dosage: UNK
     Dates: start: 20020927
  8. RANITIDINE. [Concomitant]
     Active Substance: RANITIDINE
     Dosage: UNK
     Dates: start: 20021103
  9. CHLORPHENAMINE [Concomitant]
     Active Substance: CHLORPHENIRAMINE MALEATE
     Dosage: UNK
     Route: 042
     Dates: start: 20021106, end: 20021110
  10. CHLORPHENAMINE [Concomitant]
     Active Substance: CHLORPHENIRAMINE MALEATE
     Dosage: UNK
  11. ALUMINIUM HYDROXIDE [Concomitant]
     Active Substance: ALUMINUM HYDROXIDE
     Dosage: UNK
     Route: 048
     Dates: start: 20020927, end: 20021106
  12. POVIDONE-IODINE. [Concomitant]
     Active Substance: POVIDONE-IODINE
     Dosage: UNK
     Dates: start: 20021106, end: 20021110
  13. RIFAMYCIN [Concomitant]
     Active Substance: RIFAMYCIN
     Dosage: UNK
     Dates: start: 20021104, end: 20021106
  14. CALCIUM CARBONATE. [Suspect]
     Active Substance: CALCIUM CARBONATE
     Indication: AGITATION
     Dosage: 1 GRAM, QD
     Route: 065
     Dates: start: 20020927, end: 20020927
  15. CALCITRIOL. [Suspect]
     Active Substance: CALCITRIOL
     Indication: PRODUCT USED FOR UNKNOWN INDICATION
     Dosage: 0.5 MICROGRAM, QD
     Route: 065
     Dates: start: 20020927
  16. CALCITRIOL. [Suspect]
     Active Substance: CALCITRIOL
     Dosage: UNK
     Route: 065
     Dates: start: 20020927
  17. NYSTATIN. [Suspect]
     Active Substance: NYSTATIN
     Indication: ORAL CANDIDIASIS
     Dosage: 12 ML (DAILY DOSE)
     Dates: start: 20020927, end: 20020927
  18. FLUDROCORTISONE [Suspect]
     Active Substance: FLUDROCORTISONE
     Dosage: UNK
     Route: 065
     Dates: start: 20020927
  19. CALCIUM GLUCONATE. [Suspect]
     Active Substance: CALCIUM GLUCONATE
     Indication: PRODUCT USED FOR UNKNOWN INDICATION
     Dosage: 1 GRAM
     Dates: start: 20021009, end: 20021110
  20. RANITIDINE. [Concomitant]
     Active Substance: RANITIDINE
     Dosage: UNK
     Route: 042
     Dates: start: 20021103, end: 20021110
  21. CALCIUM CARBONATE. [Suspect]
     Active Substance: CALCIUM CARBONATE
     Dosage: UNK
     Route: 048
     Dates: start: 20021004
  22. LEVOFLOXACIN. [Suspect]
     Active Substance: LEVOFLOXACIN
     Dosage: 500 MILLIGRAM
     Route: 048
     Dates: start: 20021004
  23. RABEPRAZOLE [Suspect]
     Active Substance: RABEPRAZOLE
     Indication: PRODUCT USED FOR UNKNOWN INDICATION
     Dosage: UNK
     Route: 065
     Dates: start: 20020927
  24. BETAMETHASONE. [Suspect]
     Active Substance: BETAMETHASONE
     Indication: PRODUCT USED FOR UNKNOWN INDICATION
     Dosage: 8 MILLIGRAM
     Route: 042
     Dates: start: 20021106, end: 20021110
  25. CANRENOIC ACID [Suspect]
     Active Substance: CANRENOIC ACID
     Dosage: UNK
     Dates: start: 20021027
  26. CLAVUMOX                           /02043401/ [Suspect]
     Active Substance: AMOXICILLIN\CLAVULANATE POTASSIUM
     Indication: PNEUMONIA
     Dosage: UNK
     Route: 042
     Dates: start: 20021004, end: 20021019
  27. HALOPERIDOL. [Suspect]
     Active Substance: HALOPERIDOL
     Indication: HALLUCINATION
     Dosage: UNK
     Dates: start: 20021009, end: 20021104
  28. CANRENOATE DE POTASSIUM [Suspect]
     Active Substance: CANRENOATE POTASSIUM
     Indication: AGITATION
     Dosage: UNK
     Dates: start: 20021027
  29. CALCIUM LACTOGLUCONATE [Concomitant]
     Active Substance: CALCIUM LACTATE GLUCONATE ANHYDROUS
     Dosage: UNK
     Dates: start: 20020927
  30. PANTOPRAZOLE [Suspect]
     Active Substance: PANTOPRAZOLE
     Dosage: UNK
     Route: 065
     Dates: start: 20021009
  31. BETAMETHASONE. [Suspect]
     Active Substance: BETAMETHASONE
     Dosage: UNK
     Route: 065
     Dates: start: 20020927
  32. CORTISONE ACETATE. [Suspect]
     Active Substance: CORTISONE ACETATE
     Dosage: UNK
     Route: 065
     Dates: start: 20020927
  33. CLAVUMOX                           /02043401/ [Suspect]
     Active Substance: AMOXICILLIN\CLAVULANATE POTASSIUM
     Dosage: 3600 MILLIGRAM, QD (1200 MG, TID)
     Route: 042
     Dates: start: 20021004, end: 20021019
  34. CALCIUM GLUCONATE. [Suspect]
     Active Substance: CALCIUM GLUCONATE
     Dosage: UNK
     Route: 065
     Dates: start: 20021009
  35. CALCIUM LACTOGLUCONATE [Concomitant]
     Active Substance: CALCIUM LACTATE GLUCONATE ANHYDROUS
     Dosage: UNK
  36. FUROSEMIDE. [Suspect]
     Active Substance: FUROSEMIDE
     Indication: RENAL IMPAIRMENT
     Dosage: UNK
     Route: 048
     Dates: start: 20021004, end: 20021015
  37. CORTISONE ACETATE. [Suspect]
     Active Substance: CORTISONE ACETATE
     Indication: PRODUCT USED FOR UNKNOWN INDICATION
     Dosage: 50 MILLIGRAM, QD (25 MG, BID)
     Dates: start: 20020927, end: 20021103
  38. CEFACLOR. [Suspect]
     Active Substance: CEFACLOR
     Indication: ORAL CANDIDIASIS
     Dosage: UNK
  39. CEFACLOR. [Suspect]
     Active Substance: CEFACLOR
     Dosage: UNK
  40. DIAZEMULS [Suspect]
     Active Substance: DIAZEPAM
     Indication: AGITATION
     Dosage: UNK
     Dates: start: 20021009, end: 20021106
  41. PANTOPRAZOLE [Suspect]
     Active Substance: PANTOPRAZOLE
     Indication: PROPHYLAXIS
     Dosage: UNK
     Route: 048
     Dates: start: 20021009, end: 20021106
  42. OMEPRAZOLE. [Suspect]
     Active Substance: OMEPRAZOLE
     Dosage: UNK
     Route: 065
     Dates: start: 20020927
  43. OMEPRAZOLE. [Suspect]
     Active Substance: OMEPRAZOLE
     Dosage: 20 MILLIGRAM, QD
     Route: 048
     Dates: start: 20020927
  44. CALCITRIOL. [Suspect]
     Active Substance: CALCITRIOL
     Dosage: 0.5 MICROGRAM, 0.5 MCG AT 08.00 HOURS
     Route: 065
     Dates: start: 20020927, end: 20021106
  45. DIAZEPAM. [Suspect]
     Active Substance: DIAZEPAM
     Indication: HALLUCINATION
     Dosage: UNK
     Dates: start: 20021009
  46. NYSTATIN. [Suspect]
     Active Substance: NYSTATIN
     Indication: CYSTITIS
     Dosage: 12 MILLILITER, QD
     Route: 065
     Dates: start: 20020927, end: 20021009
  47. NYSTATIN. [Suspect]
     Active Substance: NYSTATIN
     Dosage: UNK, MOST RECENT DSOE: 27/SEP/2002
     Route: 065
     Dates: start: 20020927
  48. FLUDROCORTISONE [Suspect]
     Active Substance: FLUDROCORTISONE
     Indication: PRODUCT USED FOR UNKNOWN INDICATION
     Dosage: UNK
     Dates: start: 20020927, end: 20021024
  49. HALOPERIDOL. [Suspect]
     Active Substance: HALOPERIDOL
     Indication: AGITATION
     Dosage: UNK
     Route: 065
     Dates: start: 20021009
  50. FUROSEMIDE. [Suspect]
     Active Substance: FUROSEMIDE
     Dosage: UNK
     Route: 042
     Dates: start: 20021027
  51. HYDROCORTISONE HEMISUCCINATE [Concomitant]
     Active Substance: HYDROCORTISONE HEMISUCCINATE
     Dosage: 200 MILLIGRAM
     Route: 042
     Dates: start: 20021103, end: 20021106
  52. HYDROCORTISONE HEMISUCCINATE [Concomitant]
     Active Substance: HYDROCORTISONE HEMISUCCINATE
     Dosage: UNK
  53. INSULIN [Concomitant]
     Active Substance: INSULIN NOS
     Dosage: UNK
  54. PIPERACILLIN. [Concomitant]
     Active Substance: PIPERACILLIN SODIUM
     Dosage: UNK
     Dates: start: 20021102, end: 20021104
  55. FUROSEMIDE. [Suspect]
     Active Substance: FUROSEMIDE
     Indication: OLIGURIA
     Dosage: UNK
     Route: 048
     Dates: start: 20021004
  56. CORTISONE ACETATE. [Suspect]
     Active Substance: CORTISONE ACETATE
     Dosage: 50 MILLIGRAM
     Dates: start: 20020927
  57. ALUMINIUM HYDROXIDE\MAGNESIUM CARBONATE [Suspect]
     Active Substance: ALUMINUM HYDROXIDE\MAGNESIUM CARBONATE
     Indication: PRODUCT USED FOR UNKNOWN INDICATION
     Dosage: UNK
     Dates: start: 20020927
  58. CANRENOATE DE POTASSIUM [Suspect]
     Active Substance: CANRENOATE POTASSIUM
     Dosage: UNK
     Route: 048
     Dates: start: 20021004
  59. DIAZEMULS [Suspect]
     Active Substance: DIAZEPAM
     Indication: HALLUCINATION
     Dosage: UNK, QD
     Route: 065
     Dates: start: 20021009
  60. GLUCOSE [Concomitant]
     Active Substance: DEXTROSE
     Dosage: UNK
  61. CALCIUM CARBONATE. [Suspect]
     Active Substance: CALCIUM CARBONATE
     Dosage: 1 GRAM
     Route: 065
  62. CALCIUM CARBONATE. [Suspect]
     Active Substance: CALCIUM CARBONATE
     Dosage: UNK
     Route: 065
     Dates: start: 20020927
  63. LEVOFLOXACIN. [Suspect]
     Active Substance: LEVOFLOXACIN
     Indication: PNEUMONIA
     Dosage: 500 MILLIGRAM, QD
     Route: 048
     Dates: start: 20021004, end: 20021019
  64. DIAZEPAM. [Suspect]
     Active Substance: DIAZEPAM
     Indication: AGITATION
     Dosage: UNK
  65. RABEPRAZOLE [Suspect]
     Active Substance: RABEPRAZOLE
     Dosage: UNK
  66. FUROSEMIDE. [Suspect]
     Active Substance: FUROSEMIDE
     Indication: OLIGURIA
     Dosage: UNK
     Route: 042
     Dates: start: 20021027, end: 20021106
  67. INSULIN [Concomitant]
     Active Substance: INSULIN NOS
     Dosage: UNK
     Dates: start: 20021106, end: 20021110
  68. GENTAMICIN. [Concomitant]
     Active Substance: GENTAMICIN
     Dosage: UNK
     Route: 061
     Dates: start: 20021106, end: 20021110
  69. GLUCOSE [Concomitant]
     Active Substance: DEXTROSE
     Dosage: UNK
     Route: 041
     Dates: start: 20021106, end: 20021110

REACTIONS (20)
  - Rash macular [Fatal]
  - Anaemia folate deficiency [Unknown]
  - Vitiligo [Unknown]
  - Septic shock [Fatal]
  - Skin lesion [Fatal]
  - Pyrexia [Fatal]
  - Rash erythematous [Fatal]
  - Mouth ulceration [Fatal]
  - Toxic epidermal necrolysis [Fatal]
  - Candida infection [Unknown]
  - Blister [Fatal]
  - Skin exfoliation [Fatal]
  - Chronic hepatitis [Unknown]
  - Polyglandular disorder [Unknown]
  - Endocrine disorder [Unknown]
  - Staphylococcal sepsis [Fatal]
  - Skin infection [Fatal]
  - Rash [Fatal]
  - Cystitis [Unknown]
  - Hypoparathyroidism [Unknown]

NARRATIVE: CASE EVENT DATE: 200210
